FAERS Safety Report 23553846 (Version 2)
Quarter: 2024Q1

REPORT INFORMATION
  Report Type: Spontaneous
  Country: US (occurrence: US)
  Receive Date: 20240222
  Receipt Date: 20240223
  Transmission Date: 20240410
  Serious: Yes (Other)
  Sender: FDA-Public Use
  Company Number: US-PFIZER INC-PV202400024002

PATIENT
  Age: 79 Year
  Sex: Male
  Weight: 71.202 kg

DRUGS (4)
  1. IBRANCE [Suspect]
     Active Substance: PALBOCICLIB
     Indication: Breast cancer metastatic
     Dosage: 21 DAYS ON AND 7 DAYS OFF
     Route: 048
     Dates: start: 20210513
  2. IBRANCE [Suspect]
     Active Substance: PALBOCICLIB
     Dosage: 100 MG, CYCLIC
     Route: 048
     Dates: start: 202301
  3. IBRANCE [Suspect]
     Active Substance: PALBOCICLIB
     Dosage: 14 DAYS ON AND 7 DAYS OFF
     Route: 048
  4. FASLODEX [Suspect]
     Active Substance: FULVESTRANT
     Indication: Breast cancer metastatic
     Dosage: UNK
     Dates: start: 202105

REACTIONS (10)
  - Idiopathic pulmonary fibrosis [Unknown]
  - Cytopenia [Unknown]
  - Neoplasm progression [Unknown]
  - Performance status decreased [Unknown]
  - Chronic obstructive pulmonary disease [Unknown]
  - Fatigue [Unknown]
  - Platelet count decreased [Unknown]
  - White blood cell count decreased [Unknown]
  - Neutrophil count decreased [Unknown]
  - Haemoglobin decreased [Unknown]

NARRATIVE: CASE EVENT DATE: 20221101
